FAERS Safety Report 4438447-X (Version None)
Quarter: 2004Q3

REPORT INFORMATION
  Report Type: 
  Country: None (occurrence: None)
  Receive Date: 20040831
  Receipt Date: 20040612
  Transmission Date: 20050211
  Serious: Yes (Death, Hospitalization, Other)
  Sender: FDA-Public Use
  Company Number: PHEH2004US06482

PATIENT
  Age: 59 Year
  Sex: Male
  Weight: 140 kg

DRUGS (20)
  1. ZOMETA [Suspect]
     Indication: OSTEOPOROSIS
     Dosage: 4 MG, QMO
     Dates: start: 20020708, end: 20031209
  2. VELCADE [Concomitant]
     Indication: MULTIPLE MYELOMA
     Dosage: 1.3MG/M2/ TWICE A WEEK
     Dates: start: 20031111, end: 20031212
  3. VELCADE [Concomitant]
     Dosage: 1MG/M2/ ON DAY 1, 4, 8 + 12
     Dates: start: 20040119, end: 20040216
  4. DECADRON [Concomitant]
     Indication: MULTIPLE MYELOMA
     Dosage: 16 MG, QW
     Dates: start: 20031008, end: 20040511
  5. FELDENE [Concomitant]
     Indication: ANTIINFLAMMATORY THERAPY
     Dosage: 20 MG, QD
     Dates: start: 19980402
  6. GLIPIZIDE [Concomitant]
     Indication: DIABETES MELLITUS
     Dosage: 5 MG, BID
     Dates: start: 19990303, end: 20040427
  7. LEVOFLOXACIN [Concomitant]
     Indication: CELLULITIS
     Dosage: 500 MG, QD
     Route: 048
     Dates: start: 20040224, end: 20040304
  8. INFLUENZA VACCINE [Concomitant]
     Indication: IMMUNISATION
     Dosage: UNK, ONCE/SINGLE
     Route: 042
     Dates: start: 20021217, end: 20021217
  9. INFLUENZA VACCINE [Concomitant]
     Dosage: 850 MG, UNK
     Route: 042
     Dates: start: 19971222, end: 19971224
  10. INFLUENZA VACCINE [Concomitant]
     Dosage: 800 MG, TID
     Route: 048
     Dates: start: 19971224
  11. ARANESP [Concomitant]
     Indication: ANAEMIA
     Dosage: 200 MG, QMO
     Dates: start: 20030415, end: 20040415
  12. PNEUMOVAX 23 [Concomitant]
     Indication: IMMUNISATION
     Dosage: UNK, ONCE/SINGLE
     Dates: start: 20021217, end: 20021217
  13. ZOFRAN [Concomitant]
     Indication: PROPHYLAXIS OF NAUSEA AND VOMITING
     Dosage: 8 MG, PRN
     Route: 048
     Dates: start: 20040216, end: 20040511
  14. BENADRYL [Concomitant]
     Indication: PREMEDICATION
     Dosage: 25 MG, UNK
     Route: 048
     Dates: start: 20040223, end: 20040224
  15. BENADRYL [Concomitant]
     Dosage: 50 MG, UNK
     Route: 042
     Dates: start: 19970910, end: 19970911
  16. OSCAL [Concomitant]
     Indication: MINERAL SUPPLEMENTATION
     Dosage: 500 MG, QD
  17. OXYCONTIN [Concomitant]
     Indication: PAIN
     Dosage: 20 MG, BID
     Dates: start: 20040224, end: 20040511
  18. NORCO [Concomitant]
     Indication: PAIN
     Dosage: 2-3 TABS/Q4H PRN
     Route: 042
     Dates: start: 20040223, end: 20040401
  19. NORCO [Concomitant]
     Dosage: 10-12 TABS/DAY
     Dates: start: 20040401, end: 20040504
  20. GLUCOPHAGE [Concomitant]
     Indication: DIABETES MELLITUS
     Dosage: 500 MG, TID
     Route: 042
     Dates: start: 20031229, end: 20040222

REACTIONS (17)
  - BACTERAEMIA [None]
  - BLOOD BICARBONATE DECREASED [None]
  - BLOOD CREATININE INCREASED [None]
  - BLOOD POTASSIUM INCREASED [None]
  - BONE LESION [None]
  - CARDIAC FAILURE CONGESTIVE [None]
  - CELLULITIS [None]
  - CONDITION AGGRAVATED [None]
  - HYPOAESTHESIA [None]
  - IMPAIRED HEALING [None]
  - MULTIPLE MYELOMA [None]
  - PAIN IN JAW [None]
  - PANCYTOPENIA [None]
  - PULMONARY OEDEMA [None]
  - SWELLING [None]
  - TENDERNESS [None]
  - TOOTH EXTRACTION [None]
